FAERS Safety Report 11617705 (Version 2)
Quarter: 2015Q4

REPORT INFORMATION
  Report Type: Report from Study
  Country: DE (occurrence: DE)
  Receive Date: 20151009
  Receipt Date: 20151113
  Transmission Date: 20160304
  Serious: Yes (Life-Threatening, Hospitalization)
  Sender: FDA-Public Use
  Company Number: DE-ABBVIE-15P-062-1476063-00

PATIENT
  Age: 44 Year
  Sex: Male
  Weight: 70 kg

DRUGS (5)
  1. ISENTRESS [Concomitant]
     Active Substance: RALTEGRAVIR POTASSIUM
     Indication: HIV INFECTION
     Dates: start: 20120809, end: 20131129
  2. KALETRA [Suspect]
     Active Substance: LOPINAVIR\RITONAVIR
     Indication: HIV INFECTION
     Dosage: 2X2
     Route: 065
     Dates: start: 20120809
  3. COTRIM [Concomitant]
     Active Substance: SULFAMETHOXAZOLE\TRIMETHOPRIM
     Indication: HIV INFECTION
     Dates: start: 20120809, end: 20140428
  4. TRUVADA [Concomitant]
     Active Substance: EMTRICITABINE\TENOFOVIR DISOPROXIL FUMARATE
     Indication: HIV INFECTION
     Dosage: 200/245MG
     Dates: start: 20120809, end: 20130717
  5. KALETRA [Suspect]
     Active Substance: LOPINAVIR\RITONAVIR
     Dosage: 1X4
     Route: 065

REACTIONS (12)
  - Weight decreased [Unknown]
  - Disturbance in attention [Recovering/Resolving]
  - Cerebral disorder [Unknown]
  - Apathy [Recovering/Resolving]
  - Mycobacterium avium complex infection [Unknown]
  - Disorientation [Recovering/Resolving]
  - Balance disorder [Recovering/Resolving]
  - Memory impairment [Unknown]
  - Memory impairment [Recovering/Resolving]
  - AIDS dementia complex [Recovering/Resolving]
  - Diarrhoea [Unknown]
  - Ataxia [Recovering/Resolving]

NARRATIVE: CASE EVENT DATE: 201207
